FAERS Safety Report 6085540-4 (Version None)
Quarter: 2009Q1

REPORT INFORMATION
  Report Type: 
  Country: None (occurrence: None)
  Receive Date: 20090217
  Receipt Date: 20080502
  Transmission Date: 20090719
  Serious: Yes (Other)
  Sender: FDA-Public Use
  Company Number: US-WYE-H03959008

PATIENT
  Age: 70 Year
  Sex: Male
  Weight: 97.61 kg

DRUGS (1)
  1. ALAVERT [Suspect]
     Indication: SINUS DISORDER
     Dosage: 1 TABLET 1X PER 1 DAY, ORAL
     Route: 048
     Dates: start: 20080501, end: 20080501

REACTIONS (1)
  - BURNING SENSATION [None]
